FAERS Safety Report 12353107 (Version 2)
Quarter: 2016Q2

REPORT INFORMATION
  Report Type: Spontaneous
  Country: DE (occurrence: DE)
  Receive Date: 20160510
  Receipt Date: 20160624
  Transmission Date: 20160815
  Serious: Yes (Death, Life-Threatening, Hospitalization, Other)
  Sender: FDA-Public Use
  Company Number: DE-ASTRAZENECA-2016SE47910

PATIENT
  Age: 55 Year
  Sex: Male
  Weight: 75 kg

DRUGS (16)
  1. IBUPROFEN. [Concomitant]
     Active Substance: IBUPROFEN
     Indication: BACK PAIN
     Dosage: 1-0-0 IF NEEDED
  2. IBUPROFEN. [Concomitant]
     Active Substance: IBUPROFEN
     Indication: BACK PAIN
     Dosage: 2X1
  3. METFORMIN [Concomitant]
     Active Substance: METFORMIN HYDROCHLORIDE
     Dosage: 1-0-1
  4. ACTRAPID [Concomitant]
     Active Substance: INSULIN HUMAN
     Dosage: 12-8-12 IU, CORRECTION 1:50
  5. LANTUS [Concomitant]
     Active Substance: INSULIN GLARGINE
     Indication: TYPE 2 DIABETES MELLITUS
     Route: 058
  6. LANTUS [Concomitant]
     Active Substance: INSULIN GLARGINE
     Indication: TYPE 2 DIABETES MELLITUS
     Route: 058
     Dates: start: 201312
  7. FORXIGA [Suspect]
     Active Substance: DAPAGLIFLOZIN
     Indication: TYPE 2 DIABETES MELLITUS
     Route: 048
     Dates: start: 20130912, end: 20160501
  8. JANUMET [Concomitant]
     Active Substance: METFORMIN HYDROCHLORIDE\SITAGLIPTIN PHOSPHATE
     Indication: TYPE 2 DIABETES MELLITUS
  9. NOVAMINSULFON [Concomitant]
     Active Substance: METAMIZOLE
     Dosage: 500 MG IF NEEDED 1-0-0
  10. IBUPROFEN. [Concomitant]
     Active Substance: IBUPROFEN
     Indication: BACK PAIN
     Dosage: VERY OFTEN
  11. DELIX [Concomitant]
     Active Substance: RAMIPRIL
     Dosage: 5 PLUS 1-0-0
  12. LANTUS [Concomitant]
     Active Substance: INSULIN GLARGINE
     Indication: TYPE 2 DIABETES MELLITUS
     Route: 058
  13. IBUPROFEN. [Concomitant]
     Active Substance: IBUPROFEN
     Indication: BACK PAIN
     Dosage: 1-0-0
  14. LANTUS [Concomitant]
     Active Substance: INSULIN GLARGINE
     Indication: TYPE 2 DIABETES MELLITUS
     Route: 058
  15. ONGLYZA [Concomitant]
     Active Substance: SAXAGLIPTIN HYDROCHLORIDE
     Dosage: 1-0-0
     Dates: start: 201310
  16. ACTRAPID [Concomitant]
     Active Substance: INSULIN HUMAN
     Dosage: 3 XD NACH

REACTIONS (20)
  - Haemorrhagic anaemia [Unknown]
  - Hypotension [Unknown]
  - Acute myocardial infarction [Unknown]
  - Atelectasis [Unknown]
  - Coagulopathy [Unknown]
  - Haematemesis [Unknown]
  - Supraventricular tachycardia [Unknown]
  - Aspiration [Unknown]
  - Aortic arteriosclerosis [Unknown]
  - Cardiovascular disorder [Fatal]
  - Mitral valve incompetence [Unknown]
  - Cardiac arrest [Fatal]
  - Blood glucose fluctuation [Unknown]
  - Tricuspid valve disease [Unknown]
  - Diabetic ketoacidotic hyperglycaemic coma [Fatal]
  - Cardiac failure acute [Unknown]
  - Acute respiratory failure [Unknown]
  - Hypovolaemia [Unknown]
  - Glycosylated haemoglobin increased [Unknown]
  - Treatment noncompliance [Unknown]

NARRATIVE: CASE EVENT DATE: 2016
